FAERS Safety Report 22653959 (Version 1)
Quarter: 2023Q2

REPORT INFORMATION
  Report Type: Spontaneous
  Country: US (occurrence: US)
  Receive Date: 20230629
  Receipt Date: 20230629
  Transmission Date: 20230722
  Serious: No
  Sender: FDA-Public Use
  Company Number: US-SA-SAC20230628001309

PATIENT
  Sex: Male

DRUGS (3)
  1. DUPIXENT [Suspect]
     Active Substance: DUPILUMAB
     Indication: Eosinophilic oesophagitis
     Dosage: 300 MG, QW
     Route: 058
     Dates: start: 20221220
  2. BUDESONIDE [Concomitant]
     Active Substance: BUDESONIDE
     Dosage: UNKNOWN
  3. OMEPRAZOLE [Concomitant]
     Active Substance: OMEPRAZOLE
     Dosage: UNKNOWN

REACTIONS (4)
  - Infection [Unknown]
  - Pyrexia [Unknown]
  - Hyperhidrosis [Unknown]
  - Quality of life decreased [Unknown]
